FAERS Safety Report 13211094 (Version 1)
Quarter: 2017Q1

REPORT INFORMATION
  Report Type: Spontaneous
  Country: US (occurrence: US)
  Receive Date: 20170209
  Receipt Date: 20170209
  Transmission Date: 20170428
  Serious: No
  Sender: FDA-Public Use
  Company Number: US-ALLERGAN-1660846US

PATIENT
  Sex: Female

DRUGS (4)
  1. MULTIVITAMIN [Concomitant]
     Active Substance: VITAMINS
     Indication: PRODUCT USED FOR UNKNOWN INDICATION
  2. VITAMIN D                          /00107901/ [Concomitant]
     Active Substance: ERGOCALCIFEROL
     Indication: PRODUCT USED FOR UNKNOWN INDICATION
  3. BOTOX [Suspect]
     Active Substance: ONABOTULINUMTOXINA
     Indication: PRODUCT USED FOR UNKNOWN INDICATION
     Route: 030
  4. XANAX [Concomitant]
     Active Substance: ALPRAZOLAM
     Indication: PRODUCT USED FOR UNKNOWN INDICATION

REACTIONS (11)
  - Anxiety [Unknown]
  - Presyncope [Unknown]
  - Eating disorder [Unknown]
  - Depression [Unknown]
  - Upper respiratory tract infection [Unknown]
  - Abdominal discomfort [Unknown]
  - Retching [Unknown]
  - Dyspnoea [Unknown]
  - Visual impairment [Unknown]
  - Constipation [Unknown]
  - Malaise [Unknown]
